FAERS Safety Report 7301310-0 (Version None)
Quarter: 2011Q1

REPORT INFORMATION
  Report Type: 
  Country: None (occurrence: None)
  Receive Date: 20110113
  Receipt Date: 20101116
  Transmission Date: 20110831
  Serious: Yes (Hospitalization)
  Sender: FDA-Public Use
  Company Number: 018019

PATIENT
  Sex: Male
  Weight: 88.4 kg

DRUGS (2)
  1. KEPPRA [Suspect]
  2. KEPPRA [Suspect]
     Indication: CONVULSION
     Dosage: (750 MG BID ORAL)
     Route: 048
     Dates: start: 20080701

REACTIONS (3)
  - CONVULSION [None]
  - MEDICATION ERROR [None]
  - DEEP VEIN THROMBOSIS [None]
